FAERS Safety Report 8200455-0 (Version None)
Quarter: 2012Q1

REPORT INFORMATION
  Report Type: 
  Country: None (occurrence: None)
  Receive Date: 20120301
  Receipt Date: 20120220
  Transmission Date: 20120608
  Serious: Yes (Hospitalization, Other)
  Sender: FDA-Public Use
  Company Number: 2011030587

PATIENT
  Age: 43 Year
  Sex: Female
  Weight: 83.9154 kg

DRUGS (35)
  1. HIZENTRA [Suspect]
  2. HIZENTRA [Suspect]
  3. HIZENTRA [Suspect]
  4. HIZENTRA [Suspect]
  5. HIZENTRA [Suspect]
  6. HIZENTRA [Suspect]
     Indication: IMMUNODEFICIENCY COMMON VARIABLE
     Dosage: SEE IMAGE
     Route: 058
     Dates: start: 20120205, end: 20120205
  7. HIZENTRA [Suspect]
     Indication: VITAMIN D DEFICIENCY
     Dosage: SEE IMAGE
     Route: 058
     Dates: start: 20120205, end: 20120205
  8. HIZENTRA [Suspect]
     Indication: IMMUNODEFICIENCY COMMON VARIABLE
     Dosage: SEE IMAGE
     Route: 058
     Dates: start: 20111123, end: 20111123
  9. HIZENTRA [Suspect]
     Indication: VITAMIN D DEFICIENCY
     Dosage: SEE IMAGE
     Route: 058
     Dates: start: 20111123, end: 20111123
  10. HIZENTRA [Suspect]
     Indication: IMMUNODEFICIENCY COMMON VARIABLE
     Dosage: SEE IMAGE
     Route: 058
     Dates: start: 20120217, end: 20120217
  11. HIZENTRA [Suspect]
     Indication: VITAMIN D DEFICIENCY
     Dosage: SEE IMAGE
     Route: 058
     Dates: start: 20120217, end: 20120217
  12. HIZENTRA [Suspect]
     Indication: IMMUNODEFICIENCY COMMON VARIABLE
     Dosage: SEE IMAGE
     Route: 058
     Dates: start: 20111123, end: 20111123
  13. HIZENTRA [Suspect]
     Indication: VITAMIN D DEFICIENCY
     Dosage: SEE IMAGE
     Route: 058
     Dates: start: 20111123, end: 20111123
  14. HIZENTRA [Suspect]
     Indication: IMMUNODEFICIENCY COMMON VARIABLE
     Dosage: SEE IMAGE
     Route: 058
     Dates: start: 20120205, end: 20120205
  15. HIZENTRA [Suspect]
     Indication: VITAMIN D DEFICIENCY
     Dosage: SEE IMAGE
     Route: 058
     Dates: start: 20120205, end: 20120205
  16. HIZENTRA [Suspect]
     Indication: IMMUNODEFICIENCY COMMON VARIABLE
     Dosage: SEE IMAGE
     Route: 058
     Dates: start: 20120205, end: 20120205
  17. HIZENTRA [Suspect]
     Indication: VITAMIN D DEFICIENCY
     Dosage: SEE IMAGE
     Route: 058
     Dates: start: 20120205, end: 20120205
  18. HIZENTRA [Suspect]
     Indication: IMMUNODEFICIENCY COMMON VARIABLE
     Dosage: SEE IMAGE
     Route: 058
     Dates: start: 20120217, end: 20120217
  19. HIZENTRA [Suspect]
     Indication: VITAMIN D DEFICIENCY
     Dosage: SEE IMAGE
     Route: 058
     Dates: start: 20120217, end: 20120217
  20. HIZENTRA [Suspect]
     Indication: IMMUNODEFICIENCY COMMON VARIABLE
     Dosage: SEE IMAGE
     Route: 058
     Dates: start: 20120217, end: 20120217
  21. HIZENTRA [Suspect]
     Indication: VITAMIN D DEFICIENCY
     Dosage: SEE IMAGE
     Route: 058
     Dates: start: 20120217, end: 20120217
  22. HIZENTRA [Suspect]
     Indication: IMMUNODEFICIENCY COMMON VARIABLE
     Dosage: SEE IMAGE
     Route: 058
     Dates: start: 20111111, end: 20111111
  23. HIZENTRA [Suspect]
     Indication: VITAMIN D DEFICIENCY
     Dosage: SEE IMAGE
     Route: 058
     Dates: start: 20111111, end: 20111111
  24. HIZENTRA [Suspect]
     Indication: IMMUNODEFICIENCY COMMON VARIABLE
     Dosage: SEE IMAGE
     Route: 058
     Dates: start: 20111111, end: 20111111
  25. HIZENTRA [Suspect]
     Indication: VITAMIN D DEFICIENCY
     Dosage: SEE IMAGE
     Route: 058
     Dates: start: 20111111, end: 20111111
  26. HIZENTRA [Suspect]
     Indication: IMMUNODEFICIENCY COMMON VARIABLE
     Dosage: SEE IMAGE
     Route: 058
     Dates: start: 20111111, end: 20111111
  27. HIZENTRA [Suspect]
     Indication: VITAMIN D DEFICIENCY
     Dosage: SEE IMAGE
     Route: 058
     Dates: start: 20111111, end: 20111111
  28. HIZENTRA [Suspect]
     Indication: IMMUNODEFICIENCY COMMON VARIABLE
     Dosage: SEE IMAGE
     Route: 058
     Dates: start: 20111123, end: 20111123
  29. HIZENTRA [Suspect]
     Indication: VITAMIN D DEFICIENCY
     Dosage: SEE IMAGE
     Route: 058
     Dates: start: 20111123, end: 20111123
  30. HIZENTRA [Suspect]
  31. HIZENTRA [Suspect]
  32. HIZENTRA [Suspect]
  33. HIZENTRA [Suspect]
  34. HIZENTRA [Suspect]
  35. HIZENTRA [Suspect]

REACTIONS (5)
  - HEADACHE [None]
  - AKINESIA [None]
  - MENINGITIS ASEPTIC [None]
  - PAIN [None]
  - INADEQUATE ANALGESIA [None]
